FAERS Safety Report 5858403-4 (Version None)
Quarter: 2008Q3

REPORT INFORMATION
  Report Type: 
  Country: None (occurrence: None)
  Receive Date: 20080822
  Receipt Date: 20080806
  Transmission Date: 20090109
  Serious: Yes (Other)
  Sender: FDA-Public Use
  Company Number: JPI-P-004372

PATIENT
  Age: 80 Year
  Sex: Male

DRUGS (7)
  1. FLUVOXAMINE MALEATE [Suspect]
     Indication: DEPRESSION
     Dosage: 50 MG (50 MG, 1 IN 1 D), ORAL, 75 MG (75 MG, 1 IN 1 D), ORAL, 25 MG (25 MG, 1 IN 1 D), ORAL
     Route: 048
     Dates: start: 20051207, end: 20060103
  2. FLUVOXAMINE MALEATE [Suspect]
     Indication: DEPRESSION
     Dosage: 50 MG (50 MG, 1 IN 1 D), ORAL, 75 MG (75 MG, 1 IN 1 D), ORAL, 25 MG (25 MG, 1 IN 1 D), ORAL
     Route: 048
     Dates: start: 20060104, end: 20060117
  3. FLUVOXAMINE MALEATE [Suspect]
     Indication: DEPRESSION
     Dosage: 50 MG (50 MG, 1 IN 1 D), ORAL, 75 MG (75 MG, 1 IN 1 D), ORAL, 25 MG (25 MG, 1 IN 1 D), ORAL
     Route: 048
     Dates: start: 20060118, end: 20060207
  4. FLUVOXAMINE MALEATE [Suspect]
     Indication: DEPRESSION
     Dosage: 50 MG (50 MG, 1 IN 1 D), ORAL, 75 MG (75 MG, 1 IN 1 D), ORAL, 25 MG (25 MG, 1 IN 1 D), ORAL
     Route: 048
     Dates: start: 20060208, end: 20060301
  5. QUETIAPINE FUMARATE [Suspect]
     Indication: DELUSION
     Dosage: 30 MG (30 MG, 1 IN 1 D), ORAL, 60-100 MILLIGRAMS, ORAL, 80 MG, 1 IN 1 D
     Route: 048
     Dates: start: 20050325, end: 20060312
  6. QUETIAPINE FUMARATE [Suspect]
     Indication: DELUSION
     Dosage: 30 MG (30 MG, 1 IN 1 D), ORAL, 60-100 MILLIGRAMS, ORAL, 80 MG, 1 IN 1 D
     Route: 048
     Dates: start: 20060313
  7. SULPIRIDE (SULPIRIDE) [Concomitant]

REACTIONS (3)
  - DRUG INTERACTION [None]
  - LIBIDO INCREASED [None]
  - PSYCHOMOTOR HYPERACTIVITY [None]
